FAERS Safety Report 25668740 (Version 1)
Quarter: 2025Q3

REPORT INFORMATION
  Report Type: Spontaneous
  Country: CN (occurrence: CN)
  Receive Date: 20250812
  Receipt Date: 20250812
  Transmission Date: 20251021
  Serious: Yes (Other)
  Sender: GILEAD
  Company Number: CN-GILEAD-2025-0723475

PATIENT
  Age: 25 Year
  Sex: Male

DRUGS (1)
  1. BIKTARVY [Suspect]
     Active Substance: BICTEGRAVIR SODIUM\EMTRICITABINE\TENOFOVIR ALAFENAMIDE FUMARATE
     Indication: Prophylaxis against HIV infection
     Route: 065

REACTIONS (5)
  - Liver injury [Unknown]
  - Renal injury [Unknown]
  - Suicidal ideation [Unknown]
  - Chromaturia [Unknown]
  - Emotional disorder [Unknown]
